FAERS Safety Report 5482076-6 (Version None)
Quarter: 2007Q4

REPORT INFORMATION
  Report Type: 
  Country: None (occurrence: None)
  Receive Date: 20071005
  Receipt Date: 20070816
  Transmission Date: 20080405
  Serious: Yes (Life-Threatening, Hospitalization, Other)
  Sender: FDA-Public Use
  Company Number: DAB-2007-00006

PATIENT
  Age: 52 Year
  Sex: Female

DRUGS (3)
  1. PACLITAXEL [Suspect]
     Dosage: INTRAVENOUS DRIP
     Route: 041
     Dates: start: 20070727, end: 20070727
  2. ACETAMINOPHEN [Concomitant]
  3. TRAMADOL HCL [Concomitant]

REACTIONS (1)
  - ANAPHYLACTIC REACTION [None]
